FAERS Safety Report 21169420 (Version 1)
Quarter: 2022Q3

REPORT INFORMATION
  Report Type: Spontaneous
  Country: FR (occurrence: FR)
  Receive Date: 20220804
  Receipt Date: 20220804
  Transmission Date: 20221027
  Serious: Yes (Hospitalization)
  Sender: FDA-Public Use
  Company Number: None

PATIENT
  Age: 53 Year
  Sex: Female
  Weight: 65 kg

DRUGS (6)
  1. AMOXICILLIN [Suspect]
     Active Substance: AMOXICILLIN
     Indication: Antibiotic therapy
     Dosage: DURATION 2 DAYS
     Dates: start: 20210830, end: 20210901
  2. ACETAMINOPHEN [Suspect]
     Active Substance: ACETAMINOPHEN
     Indication: Product used for unknown indication
     Dosage: DURATION 1 DAYS
     Dates: start: 20210826, end: 20210826
  3. COMIRNATY [Suspect]
     Active Substance: TOZINAMERAN
     Indication: COVID-19 immunisation
     Dosage: D2, COVID-19 MRNA VACCINE (MODIFIED NUCLEOSIDE), UNIT DOSE: 1 DF, DURATION-1 DAYS
     Dates: start: 20210825, end: 20210825
  4. LAMALINE [Concomitant]
     Indication: Ankylosing spondylitis
     Dosage: 3 DOSAGE FORMS DAILY; 3 CAPSULES PER DAY
  5. CELEBREX [Concomitant]
     Active Substance: CELECOXIB
     Indication: Ankylosing spondylitis
     Dosage: 200 MILLIGRAM DAILY; 1 TABLET PER DAY
  6. METFORMINE ALTER [Concomitant]
     Indication: Product used for unknown indication
     Dosage: 1 TABLET MIDDAY AND EVENING, FORM STRENGTH: 850 MG, UNIT DOSE: 1700 MG,

REACTIONS (1)
  - Drug reaction with eosinophilia and systemic symptoms [Recovered/Resolved]

NARRATIVE: CASE EVENT DATE: 20210901
